FAERS Safety Report 8761275 (Version 2)
Quarter: 2014Q1

REPORT INFORMATION
  Report Type: Spontaneous
  Country: US (occurrence: US)
  Receive Date: 20120830
  Receipt Date: 20140223
  Transmission Date: 20141002
  Serious: Yes (Disabling)
  Sender: FDA-Public Use
  Company Number: US-GE HEALTHCARE MEDICAL DIAGNOSTICS-OSCN-PR-1208S-0132

PATIENT
  Sex: Male

DRUGS (3)
  1. OMNISCAN [Suspect]
     Indication: PANCREATIC MASS
     Dates: start: 20050806, end: 20050806
  2. OMNISCAN [Suspect]
     Indication: GAIT DISTURBANCE
     Dates: start: 20060927, end: 20060927
  3. MAGNEVIST [Suspect]
     Indication: PANCREATIC MASS
     Dates: start: 20061120, end: 20061120

REACTIONS (1)
  - Nephrogenic systemic fibrosis [Not Recovered/Not Resolved]
